FAERS Safety Report 22263845 (Version 1)
Quarter: 2023Q2

REPORT INFORMATION
  Report Type: Spontaneous
  Country: CA (occurrence: CA)
  Receive Date: 20230428
  Receipt Date: 20230428
  Transmission Date: 20230721
  Serious: Yes (Other)
  Sender: FDA-Public Use
  Company Number: CA-002147023-NVSC2023CA092413

PATIENT

DRUGS (9)
  1. PIPERACILLIN AND TAZOBACTAM [Suspect]
     Active Substance: PIPERACILLIN SODIUM\TAZOBACTAM SODIUM
     Indication: Foetal exposure during pregnancy
     Dosage: MATERNAL DOSE:UNK
     Route: 064
  2. FENTANYL [Suspect]
     Active Substance: FENTANYL
     Indication: Foetal exposure during pregnancy
     Dosage: MATERNAL DOSE: 250 UG/HR
     Route: 064
  3. MIDAZOLAM [Suspect]
     Active Substance: MIDAZOLAM
     Indication: Foetal exposure during pregnancy
     Dosage: MATERNAL DOSE: 10 MG/HR
     Route: 064
  4. ROCURONIUM BROMIDE [Suspect]
     Active Substance: ROCURONIUM BROMIDE
     Indication: Foetal exposure during pregnancy
     Dosage: MATERNAL DOSE:20 UG/KG/MIN
     Route: 064
  5. ROCURONIUM BROMIDE [Suspect]
     Active Substance: ROCURONIUM BROMIDE
     Dosage: MATERNAL DOSE:50 MG, UNKNOWN
     Route: 064
  6. NOREPINEPHRINE [Suspect]
     Active Substance: NOREPINEPHRINE
     Indication: Foetal exposure during pregnancy
     Dosage: MATERNAL DOSE: 0.02 UG/KG/MIN
     Route: 064
  7. VASOPRESSIN [Suspect]
     Active Substance: VASOPRESSIN
     Indication: Foetal exposure during pregnancy
     Dosage: MATERNAL DOSE: 0.04 IU/MIN
     Route: 064
  8. PROPOFOL [Suspect]
     Active Substance: PROPOFOL
     Indication: Foetal exposure during pregnancy
     Dosage: MATERNAL DOSE: 60 UG/KG/MIN
     Route: 064
  9. NITRIC OXIDE [Suspect]
     Active Substance: NITRIC OXIDE
     Indication: Foetal exposure during pregnancy
     Dosage: 40 PPM
     Route: 064

REACTIONS (5)
  - Premature baby [Unknown]
  - Neonatal asphyxia [Unknown]
  - Hypotonia neonatal [Unknown]
  - Foetal exposure during delivery [Unknown]
  - Foetal exposure during pregnancy [Unknown]
